FAERS Safety Report 5096607-1 (Version None)
Quarter: 2006Q3

REPORT INFORMATION
  Report Type: 
  Country: None (occurrence: None)
  Receive Date: 20060830
  Receipt Date: 20060822
  Transmission Date: 20061208
  Serious: Yes (Hospitalization)
  Sender: FDA-Public Use
  Company Number: 2006102572

PATIENT
  Age: 40 Year
  Sex: Male

DRUGS (1)
  1. ZOLOFT [Suspect]
     Indication: PERSONALITY CHANGE DUE TO A GENERAL MEDICAL CONDITION
     Dosage: ORAL
     Route: 048

REACTIONS (8)
  - BLOOD CREATININE DECREASED [None]
  - BLOOD GLUCOSE INCREASED [None]
  - BLOOD UREA DECREASED [None]
  - GAMMA-GLUTAMYLTRANSFERASE DECREASED [None]
  - HYPONATRAEMIA [None]
  - LOSS OF CONSCIOUSNESS [None]
  - OVERDOSE [None]
  - SYNCOPE [None]
